FAERS Safety Report 19206643 (Version 2)
Quarter: 2021Q2

REPORT INFORMATION
  Report Type: Spontaneous
  Country: BR (occurrence: BR)
  Receive Date: 20210503
  Receipt Date: 20210507
  Transmission Date: 20210717
  Serious: Yes (Life-Threatening)
  Sender: FDA-Public Use
  Company Number: NVSC2021BR098926

PATIENT
  Sex: Male

DRUGS (1)
  1. RITALINA LA [Suspect]
     Active Substance: METHYLPHENIDATE HYDROCHLORIDE
     Indication: PRODUCT USED FOR UNKNOWN INDICATION
     Dosage: 2 DF, QD (PACK OF 30 TABLETS), (STARTED MORE THAN 2 YEARS AGO)
     Route: 065

REACTIONS (3)
  - Suicide attempt [Unknown]
  - Drug ineffective [Unknown]
  - Depression [Unknown]
